FAERS Safety Report 8453061-7 (Version None)
Quarter: 2012Q2

REPORT INFORMATION
  Report Type: 
  Country: None (occurrence: None)
  Receive Date: 20120620
  Receipt Date: 20120612
  Transmission Date: 20120825
  Serious: Yes (Other)
  Sender: FDA-Public Use
  Company Number: GXKR2010FR06204

PATIENT
  Sex: Male
  Weight: 39 kg

DRUGS (6)
  1. LEVOTHYROXINE SODIUM [Concomitant]
     Dosage: 150 UG, QD
     Route: 048
     Dates: start: 20100126, end: 20100101
  2. LEVOTHYROXINE SODIUM [Concomitant]
     Indication: HYPOTHYROIDISM
     Dosage: 100 UG, QD
     Route: 048
     Dates: start: 20090216, end: 20091109
  3. LEVOTHYROXINE SODIUM [Concomitant]
     Dosage: 125 UG, QD
     Route: 048
     Dates: start: 20091110, end: 20100101
  4. LEVOTHYROXINE SODIUM [Concomitant]
     Dosage: 175 UG, QD
     Route: 048
     Dates: start: 20100101
  5. SOMATROPIN [Suspect]
     Dosage: 1 MG, QD
     Route: 058
     Dates: start: 20100126, end: 20100607
  6. SOMATROPIN [Suspect]
     Indication: SMALL FOR DATES BABY
     Dosage: 1.3 MG, QD
     Route: 058
     Dates: start: 20090216, end: 20090817

REACTIONS (9)
  - OEDEMA PERIPHERAL [None]
  - FACE OEDEMA [None]
  - VENOUS PRESSURE JUGULAR [None]
  - LOCALISED OEDEMA [None]
  - HEPATOMEGALY [None]
  - PULMONARY ARTERY ATRESIA [None]
  - HEART INJURY [None]
  - HYPERNATRAEMIA [None]
  - CONCOMITANT DISEASE PROGRESSION [None]
